FAERS Safety Report 8117156-X (Version None)
Quarter: 2012Q1

REPORT INFORMATION
  Report Type: 
  Country: None (occurrence: None)
  Receive Date: 20120206
  Receipt Date: 20120131
  Transmission Date: 20120608
  Serious: Yes (Life-Threatening)
  Sender: FDA-Public Use
  Company Number: CA-ASTRAZENECA-2012SE06612

PATIENT
  Age: 15 Year
  Sex: Male
  Weight: 62.6 kg

DRUGS (9)
  1. REMIFENTANIL [Concomitant]
  2. KETAMINE HCL [Concomitant]
     Indication: ANALGESIC THERAPY
     Route: 042
  3. FENTANYL CITRATE [Concomitant]
  4. PROPOFOL [Suspect]
     Indication: GENERAL ANAESTHESIA
     Route: 042
  5. PROPOFOL [Suspect]
     Route: 042
  6. HYDROMORPHONE HCL [Concomitant]
     Indication: ANALGESIC THERAPY
     Route: 042
  7. ACETAMINOPHEN [Suspect]
     Indication: ANALGESIC THERAPY
     Dosage: 93 MG/KG OVER 3 DAYS
     Route: 048
  8. SEVOFLURANE [Suspect]
     Indication: GENERAL ANAESTHESIA
  9. THIOPENTAL SODIUM [Concomitant]

REACTIONS (3)
  - ACUTE HEPATIC FAILURE [None]
  - RENAL FAILURE ACUTE [None]
  - ENCEPHALOPATHY [None]
